FAERS Safety Report 6337538-6 (Version None)
Quarter: 2009Q3

REPORT INFORMATION
  Report Type: 
  Country: None (occurrence: None)
  Receive Date: 20090902
  Receipt Date: 20090827
  Transmission Date: 20100115
  Serious: Yes (Death)
  Sender: FDA-Public Use
  Company Number: PHHO2009MW08537

PATIENT
  Sex: Male
  Weight: 9.2 kg

DRUGS (2)
  1. CGP 56697 T31707+TAB [Suspect]
     Indication: MALARIA
     Dosage: DOUBLE BLIND
     Route: 048
     Dates: start: 20080320, end: 20080322
  2. CGP 56697 T31707+TAB [Suspect]
     Dosage: DOUBLE BLIND
     Route: 048
     Dates: start: 20080414, end: 20080416

REACTIONS (6)
  - CIRCULATORY COLLAPSE [None]
  - COMA [None]
  - FALL [None]
  - HYPOTONIA [None]
  - LOSS OF CONSCIOUSNESS [None]
  - UNRESPONSIVE TO STIMULI [None]
